FAERS Safety Report 5222179-4 (Version None)
Quarter: 2007Q1

REPORT INFORMATION
  Report Type: 
  Country: None (occurrence: None)
  Receive Date: 20070129
  Receipt Date: 20060905
  Transmission Date: 20070707
  Serious: No
  Sender: FDA-Public Use
  Company Number: US-GLAXOSMITHKLINE-A0619060A

PATIENT
  Age: 70 Year
  Sex: Male

DRUGS (7)
  1. WELLBUTRIN [Suspect]
     Indication: DEPRESSION
     Dosage: 100MG PER DAY
     Route: 048
     Dates: start: 20060903
  2. PROPRANOLOL [Concomitant]
  3. TRICOR [Concomitant]
  4. HYDROCHLOROTHIAZIDE [Concomitant]
  5. LITHIUM CARBONATE [Concomitant]
  6. ASPIRIN [Concomitant]
  7. SYNTHROID [Concomitant]

REACTIONS (1)
  - TREMOR [None]
